FAERS Safety Report 23766454 (Version 5)
Quarter: 2024Q3

REPORT INFORMATION
  Report Type: Report from Study
  Country: BR (occurrence: BR)
  Receive Date: 20240422
  Receipt Date: 20240702
  Transmission Date: 20241016
  Serious: Yes (Other)
  Sender: NOVO NORDISK
  Company Number: BR-NOVOPROD-1205625

PATIENT
  Age: 60 Year
  Sex: Male
  Weight: 94 kg

DRUGS (2)
  1. APIDRA [Concomitant]
     Active Substance: INSULIN GLULISINE
     Indication: Diabetes mellitus
     Dosage: UNK
  2. XULTOPHY 100/3.6 [Suspect]
     Active Substance: INSULIN DEGLUDEC\LIRAGLUTIDE
     Indication: Diabetes mellitus
     Dosage: UNK
     Dates: start: 20240403

REACTIONS (6)
  - Blood glucose increased [Recovered/Resolved]
  - Device malfunction [Unknown]
  - Device delivery system issue [Unknown]
  - Vision blurred [Unknown]
  - Condition aggravated [Unknown]
  - Product storage error [Unknown]

NARRATIVE: CASE EVENT DATE: 20240403
